FAERS Safety Report 20376269 (Version 3)
Quarter: 2022Q1

REPORT INFORMATION
  Report Type: Spontaneous
  Country: GB (occurrence: None)
  Receive Date: 20220125
  Receipt Date: 20220214
  Transmission Date: 20220423
  Serious: Yes (Life-Threatening, Hospitalization, Other)
  Sender: FDA-Public Use
  Company Number: 2022A041705

PATIENT
  Sex: Male
  Weight: 3.1 kg

DRUGS (12)
  1. OMEPRAZOLE [Suspect]
     Active Substance: OMEPRAZOLE
     Indication: Vomiting
     Dosage: 40 MG40.0MG UNKNOWN
     Route: 064
  2. OMEPRAZOLE [Suspect]
     Active Substance: OMEPRAZOLE
     Indication: Foetal exposure during pregnancy
     Dosage: 40 MG40.0MG UNKNOWN
     Route: 064
  3. ZOFRAN [Suspect]
     Active Substance: ONDANSETRON HYDROCHLORIDE
     Indication: Vomiting
     Route: 064
  4. ZOFRAN [Suspect]
     Active Substance: ONDANSETRON HYDROCHLORIDE
     Indication: Foetal exposure during pregnancy
     Route: 064
  5. PROCHLORPERAZINE [Suspect]
     Active Substance: PROCHLORPERAZINE
     Indication: Vomiting
     Route: 064
  6. PROCHLORPERAZINE [Suspect]
     Active Substance: PROCHLORPERAZINE
     Indication: Foetal exposure during pregnancy
     Route: 064
  7. METOCLOPRAMIDE [Suspect]
     Active Substance: METOCLOPRAMIDE
     Indication: Vomiting
     Dosage: 10.0MG UNKNOWN
     Route: 064
  8. METOCLOPRAMIDE [Suspect]
     Active Substance: METOCLOPRAMIDE
     Indication: Foetal exposure during pregnancy
     Dosage: 10.0MG UNKNOWN
     Route: 064
  9. CYCLIZINE [Suspect]
     Active Substance: CYCLIZINE
     Indication: Vomiting
     Route: 064
  10. CYCLIZINE [Suspect]
     Active Substance: CYCLIZINE
     Indication: Foetal exposure during pregnancy
     Route: 064
  11. FERROUS FUMARATE [Concomitant]
     Active Substance: FERROUS FUMARATE
     Indication: Anaemia
     Route: 064
  12. FERROUS FUMARATE [Concomitant]
     Active Substance: FERROUS FUMARATE
     Indication: Foetal exposure during pregnancy
     Route: 064

REACTIONS (4)
  - Meconium abnormal [Unknown]
  - Abdominal distension [Unknown]
  - Necrotising enterocolitis neonatal [Unknown]
  - Foetal exposure during pregnancy [Unknown]
